FAERS Safety Report 17502626 (Version 1)
Quarter: 2020Q1

REPORT INFORMATION
  Report Type: Spontaneous
  Country: US (occurrence: US)
  Receive Date: 20200305
  Receipt Date: 20200305
  Transmission Date: 20200409
  Serious: No
  Sender: FDA-Public Use
  Company Number: None

PATIENT
  Age: 29 Year
  Sex: Female
  Weight: 80.3 kg

DRUGS (21)
  1. SUCRALFATE 1G [Concomitant]
  2. ALBUTEROL HFA 90MCG/INH [Concomitant]
  3. ARIPIPRAZOLE 2MG TABLET [Concomitant]
     Active Substance: ARIPIPRAZOLE
  4. CELECOXIB 100MG [Concomitant]
     Active Substance: CELECOXIB
  5. TOPIRAMATE 25MG [Concomitant]
     Active Substance: TOPIRAMATE
  6. MOTEGRITY [Suspect]
     Active Substance: PRUCALOPRIDE SUCCINATE
     Indication: CONSTIPATION
     Route: 048
     Dates: start: 20200226, end: 20200303
  7. DICYCLOMINE 20MG TABLET [Concomitant]
     Active Substance: DICYCLOMINE HYDROCHLORIDE
  8. FERROUS SULFATE 325MG [Concomitant]
     Active Substance: FERROUS SULFATE
  9. LORATADINE 10MG TABLET [Concomitant]
     Active Substance: LORATADINE
  10. TRAZODONE [Concomitant]
     Active Substance: TRAZODONE HYDROCHLORIDE
  11. ETHINYL ESTRADIOL-NORETHINDRONE [Concomitant]
  12. MELATONIN 10MG CAPSULE [Concomitant]
  13. METFORMIN 500MG TABLET [Concomitant]
  14. MIRTAZAPINE 30MG TABLET [Concomitant]
  15. CLONIDINE 0.1MG TABLET [Concomitant]
  16. OXCARBAZEPINE 600MG [Concomitant]
  17. BUSPIRIONE 10MG [Concomitant]
  18. IMIPRAMINE 50MG [Concomitant]
  19. PROMETHAZINE [Concomitant]
     Active Substance: PROMETHAZINE HYDROCHLORIDE
  20. LEVOTHYROXINE 150 MCG TABLET [Concomitant]
  21. PANCRELIPASE. [Concomitant]
     Active Substance: PANCRELIPASE

REACTIONS (1)
  - Self-injurious ideation [None]

NARRATIVE: CASE EVENT DATE: 20200304
